FAERS Safety Report 13055052 (Version 2)
Quarter: 2019Q2

REPORT INFORMATION
  Report Type: Spontaneous
  Country: IR (occurrence: IR)
  Receive Date: 20161222
  Receipt Date: 20190620
  Transmission Date: 20190711
  Serious: Yes (Hospitalization)
  Sender: FDA-Public Use
  Company Number: IR-INDIVIOR LIMITED-INDV-097304-2016

PATIENT
  Age: 37 Year
  Sex: Male

DRUGS (14)
  1. OLANZAPINE. [Concomitant]
     Active Substance: OLANZAPINE
     Indication: DEPRESSION
     Dosage: UNK
     Route: 065
  2. CHLORPROMAZINE. [Concomitant]
     Active Substance: CHLORPROMAZINE
     Indication: RESTLESSNESS
     Dosage: UNK
     Route: 065
  3. OLANZAPINE. [Concomitant]
     Active Substance: OLANZAPINE
     Indication: AGITATION
     Dosage: UNK
     Route: 065
  4. METHAMPHETAMINE [Suspect]
     Active Substance: METHAMPHETAMINE
     Indication: PRODUCT USED FOR UNKNOWN INDICATION
     Dosage: UNK
     Route: 055
  5. VALPROATE NA [Concomitant]
     Active Substance: VALPROATE SODIUM
     Indication: AGITATION
     Dosage: UNK
     Route: 065
  6. VALPROATE NA [Concomitant]
     Active Substance: VALPROATE SODIUM
     Indication: DEPRESSION
     Dosage: 1000 MG, QD
     Route: 065
  7. VALPROATE NA [Concomitant]
     Active Substance: VALPROATE SODIUM
     Indication: RESTLESSNESS
     Dosage: UNK
     Route: 065
  8. CHLORPROMAZINE. [Concomitant]
     Active Substance: CHLORPROMAZINE
     Indication: AGITATION
     Dosage: UNK
     Route: 065
  9. CHLORPROMAZINE. [Concomitant]
     Active Substance: CHLORPROMAZINE
     Indication: DEPRESSION
     Dosage: 300 MG, QD
     Route: 065
  10. BUPRENORPHINE. [Suspect]
     Active Substance: BUPRENORPHINE
     Indication: DRUG DEPENDENCE
     Dosage: UNK
     Route: 065
  11. OPIOIDS [Suspect]
     Active Substance: UNSPECIFIED INGREDIENT
     Indication: PRODUCT USED FOR UNKNOWN INDICATION
     Dosage: UNK
     Route: 065
  12. BUPRENORPHINE. [Suspect]
     Active Substance: BUPRENORPHINE
     Indication: DRUG WITHDRAWAL SYNDROME
     Dosage: 16 MG, QD
     Route: 065
  13. BUPRENORPHINE. [Suspect]
     Active Substance: BUPRENORPHINE
     Dosage: UNK
     Route: 065
  14. OLANZAPINE. [Concomitant]
     Active Substance: OLANZAPINE
     Indication: RESTLESSNESS
     Dosage: 30 MG, QD
     Route: 065

REACTIONS (5)
  - Drug dependence [Unknown]
  - Drug screen positive [Unknown]
  - Drug abuse [Unknown]
  - Substance-induced psychotic disorder [Unknown]
  - Intentional underdose [Recovered/Resolved]
